FAERS Safety Report 15998764 (Version 3)
Quarter: 2019Q1

REPORT INFORMATION
  Report Type: Spontaneous
  Country: US (occurrence: US)
  Receive Date: 20190223
  Receipt Date: 20190311
  Transmission Date: 20190418
  Serious: No
  Sender: FDA-Public Use
  Company Number: US-MYLANLABS-2019M1012118

PATIENT

DRUGS (1)
  1. EMSAM [Suspect]
     Active Substance: SELEGILINE
     Indication: PANIC ATTACK
     Dosage: 6 MILLIGRAM
     Route: 062
     Dates: start: 2006

REACTIONS (18)
  - Movement disorder [Recovered/Resolved]
  - Spinal pain [Recovered/Resolved]
  - Muscle disorder [Recovered/Resolved]
  - Hypertension [Recovered/Resolved]
  - Tachycardia [Recovered/Resolved]
  - Feeling abnormal [Recovering/Resolving]
  - Neck pain [Recovered/Resolved]
  - Pain [Not Recovered/Not Resolved]
  - Off label use [Not Recovered/Not Resolved]
  - Dyspnoea [Recovered/Resolved]
  - Hyperhidrosis [Recovered/Resolved]
  - Headache [Recovered/Resolved]
  - Muscle spasms [Not Recovered/Not Resolved]
  - Dysplasia [Not Recovered/Not Resolved]
  - Bone pain [Unknown]
  - Dysphagia [Unknown]
  - Neuralgia [Recovered/Resolved]
  - Nervous system disorder [Recovered/Resolved]
